FAERS Safety Report 5957558-0 (Version None)
Quarter: 2008Q4

REPORT INFORMATION
  Report Type: 
  Country: None (occurrence: None)
  Receive Date: 20081117
  Receipt Date: 20081117
  Transmission Date: 20090506
  Serious: No
  Sender: FDA-Public Use
  Company Number: None

PATIENT
  Age: 76 Year
  Sex: Female
  Weight: 65.7716 kg

DRUGS (1)
  1. RECLAST [Suspect]
     Indication: BONE DISORDER
     Dates: start: 20081001

REACTIONS (5)
  - ANOREXIA [None]
  - FATIGUE [None]
  - HYPOPHAGIA [None]
  - STOMATITIS [None]
  - TONGUE ULCERATION [None]
